FAERS Safety Report 7272928-9 (Version None)
Quarter: 2011Q1

REPORT INFORMATION
  Report Type: 
  Country: None (occurrence: None)
  Receive Date: 20110203
  Receipt Date: 20110125
  Transmission Date: 20110831
  Serious: Yes (Other)
  Sender: FDA-Public Use
  Company Number: US-MYLANLABS-2010S1021533

PATIENT
  Age: 28 Year
  Sex: Female

DRUGS (2)
  1. CONTRACEPTIVES [Concomitant]
  2. AMNESTEEM [Suspect]
     Dates: start: 20100831, end: 20101025

REACTIONS (2)
  - DRUG EXPOSURE DURING PREGNANCY [None]
  - ABORTION INDUCED [None]
